FAERS Safety Report 5435350-3 (Version None)
Quarter: 2007Q3

REPORT INFORMATION
  Report Type: 
  Country: None (occurrence: None)
  Receive Date: 20070831
  Receipt Date: 20070817
  Transmission Date: 20080115
  Serious: No
  Sender: FDA-Public Use
  Company Number: A0670838A

PATIENT
  Sex: Female

DRUGS (1)
  1. ALLI [Suspect]
     Indication: DRUG USE FOR UNKNOWN INDICATION
     Dates: start: 20070624

REACTIONS (4)
  - LIP ULCERATION [None]
  - MOUTH ULCERATION [None]
  - PHARYNGOLARYNGEAL PAIN [None]
  - TONGUE DISORDER [None]
